FAERS Safety Report 22343736 (Version 2)
Quarter: 2023Q2

REPORT INFORMATION
  Report Type: Report from Study
  Country: US (occurrence: US)
  Receive Date: 20230519
  Receipt Date: 20230615
  Transmission Date: 20230722
  Serious: Yes (Other)
  Sender: FDA-Public Use
  Company Number: US-002147023-NVSC2023US109604

PATIENT
  Sex: Female
  Weight: 72.562 kg

DRUGS (16)
  1. CLINDAMYCIN [Suspect]
     Active Substance: CLINDAMYCIN
     Indication: Hidradenitis
     Dosage: UNK
     Route: 061
  2. LISINOPRIL [Suspect]
     Active Substance: LISINOPRIL
     Indication: Hidradenitis
     Dosage: UNK
     Route: 065
  3. CETIRIZINE [Suspect]
     Active Substance: CETIRIZINE HYDROCHLORIDE
     Indication: Hidradenitis
     Dosage: UNK
     Route: 065
  4. RISPERIDONE [Suspect]
     Active Substance: RISPERIDONE
     Indication: Hidradenitis
     Dosage: UNK
     Route: 065
  5. CLOBETASOL [Suspect]
     Active Substance: CLOBETASOL
     Indication: Hidradenitis
     Dosage: UNK
     Route: 065
  6. VITAMINS [Suspect]
     Active Substance: VITAMINS
     Indication: Hidradenitis
     Dosage: UNK (16)
     Route: 065
  7. DIVALPROEX SODIUM [Suspect]
     Active Substance: DIVALPROEX SODIUM
     Indication: Hidradenitis
     Dosage: UNK
     Route: 065
  8. DOXYCYCLINE [Suspect]
     Active Substance: DOXYCYCLINE
     Indication: Hidradenitis
     Dosage: UNK
     Route: 065
  9. FERROUS SULFATE [Suspect]
     Active Substance: FERROUS SULFATE
     Indication: Hidradenitis
     Dosage: UNK
     Route: 065
  10. LAMOTRIGINE [Suspect]
     Active Substance: LAMOTRIGINE
     Indication: Hidradenitis
     Dosage: UNK
     Route: 048
  11. OXYCODONE [Suspect]
     Active Substance: OXYCODONE
     Indication: Hidradenitis
     Dosage: UNK
     Route: 065
  12. TRAZODONE [Suspect]
     Active Substance: TRAZODONE HYDROCHLORIDE
     Indication: Hidradenitis
     Dosage: UNK
     Route: 065
  13. BACLOFEN [Suspect]
     Active Substance: BACLOFEN
     Indication: Hidradenitis
     Dosage: UNK
     Route: 065
  14. FAMOTIDINE [Suspect]
     Active Substance: FAMOTIDINE
     Indication: Hidradenitis
     Dosage: UNK
     Route: 065
  15. PROPRANOLOL [Suspect]
     Active Substance: PROPRANOLOL HYDROCHLORIDE
     Indication: Hidradenitis
     Dosage: UNK
     Route: 065
  16. HUMIRA [Suspect]
     Active Substance: ADALIMUMAB
     Indication: Hidradenitis
     Dosage: UNK
     Route: 065
     Dates: start: 202203

REACTIONS (4)
  - Psoriasis [Not Recovered/Not Resolved]
  - Alopecia [Unknown]
  - Treatment failure [Unknown]
  - Product use in unapproved indication [Unknown]
